FAERS Safety Report 8437118-2 (Version None)
Quarter: 2012Q2

REPORT INFORMATION
  Report Type: 
  Country: None (occurrence: None)
  Receive Date: 20120614
  Receipt Date: 20120330
  Transmission Date: 20120825
  Serious: No
  Sender: FDA-Public Use
  Company Number: US-AMGEN-USASP2012020420

PATIENT
  Age: 83 Year
  Sex: Female

DRUGS (5)
  1. FLUDROCORTISONE ACETATE [Concomitant]
  2. PREDNISONE TAB [Concomitant]
  3. PREDNISONE TAB [Concomitant]
  4. PROLIA [Suspect]
     Indication: OSTEOPOROSIS POSTMENOPAUSAL
     Dosage: UNK
     Dates: start: 20110101
  5. SYNTHROID [Concomitant]

REACTIONS (1)
  - DRUG ERUPTION [None]
